FAERS Safety Report 5477090-0 (Version None)
Quarter: 2007Q4

REPORT INFORMATION
  Report Type: 
  Country: None (occurrence: None)
  Receive Date: 20071003
  Receipt Date: 20071003
  Transmission Date: 20080405
  Serious: Yes (Other)
  Sender: FDA-Public Use
  Company Number: None

PATIENT
  Age: 18 Year
  Sex: Female
  Weight: 61.2356 kg

DRUGS (1)
  1. YASMIN [Suspect]
     Indication: MENSTRUATION IRREGULAR
     Dosage: 1 PER DAY
     Dates: start: 20070301, end: 20070520

REACTIONS (3)
  - ANXIETY [None]
  - IRRITABLE BOWEL SYNDROME [None]
  - MENTAL DISORDER [None]
